FAERS Safety Report 24250102 (Version 3)
Quarter: 2024Q4

REPORT INFORMATION
  Report Type: Spontaneous
  Country: CZ (occurrence: CZ)
  Receive Date: 20240826
  Receipt Date: 20241022
  Transmission Date: 20250115
  Serious: No
  Sender: PFIZER
  Company Number: CZ-PFIZER INC-202400239916

PATIENT
  Sex: Female

DRUGS (2)
  1. DEPO-PROVERA [Suspect]
     Active Substance: MEDROXYPROGESTERONE ACETATE
     Dosage: 1X PER 3 MONTHS
     Dates: start: 20240814, end: 20240814
  2. ESTRADIOL [Concomitant]
     Active Substance: ESTRADIOL
     Dosage: 1-2 SPRAYS DAILY
     Route: 062

REACTIONS (2)
  - Drug dose omission by device [Unknown]
  - Device leakage [Unknown]

NARRATIVE: CASE EVENT DATE: 20240814
